FAERS Safety Report 8593139-0 (Version None)
Quarter: 2012Q3

REPORT INFORMATION
  Report Type: 
  Country: None (occurrence: None)
  Receive Date: 20120814
  Receipt Date: 20120810
  Transmission Date: 20120928
  Serious: Yes (Death)
  Sender: FDA-Public Use
  Company Number: US-ASTRAZENECA-2012SE56656

PATIENT
  Age: 83 Year
  Sex: Female

DRUGS (2)
  1. FULVESTRANT [Suspect]
     Indication: BREAST CANCER METASTATIC
     Dosage: 500MG ON DAY1, AND 250MG ON DAY 14 AND 28, AND THEREAFTER EVERY 28 DAYS
     Route: 030
  2. ANASTROZOLE [Suspect]
     Indication: BREAST CANCER METASTATIC
     Route: 048

REACTIONS (2)
  - CEREBRAL ISCHAEMIA [None]
  - SEPTIC SHOCK [None]
